FAERS Safety Report 9553853 (Version 1)
Quarter: 2013Q3

REPORT INFORMATION
  Report Type: Spontaneous
  Country: US (occurrence: None)
  Receive Date: 20130924
  Receipt Date: 20130924
  Transmission Date: 20140515
  Serious: Yes (Other)
  Sender: FDA-Public Use
  Company Number: None

PATIENT
  Age: 77 Year
  Sex: Female
  Weight: 89.36 kg

DRUGS (4)
  1. XARELTO [Suspect]
  2. INSPRA [Suspect]
  3. ACCUPRIL [Suspect]
  4. KEFLEX [Suspect]

REACTIONS (4)
  - Anxiety [None]
  - Abnormal behaviour [None]
  - Hallucination, visual [None]
  - Thinking abnormal [None]
